FAERS Safety Report 9371922 (Version 2)
Quarter: 2013Q2

REPORT INFORMATION
  Report Type: Spontaneous
  Country: JP (occurrence: JP)
  Receive Date: 20130627
  Receipt Date: 20130627
  Transmission Date: 20140414
  Serious: Yes (Death, Life-Threatening)
  Sender: FDA-Public Use
  Company Number: JP-PFIZER INC-HQWYE880219SEP06

PATIENT
  Age: 77 Year
  Sex: Male
  Weight: 41 kg

DRUGS (40)
  1. TAZOCIN [Suspect]
     Indication: PNEUMONIA ASPIRATION
     Dosage: 10.0 G, DAILY
     Route: 041
     Dates: start: 20060906, end: 20060907
  2. TAZOCIN [Suspect]
     Dosage: 7.5 G, DAILY
     Route: 041
     Dates: start: 20060905, end: 20060905
  3. VASOPRESSIN [Suspect]
     Indication: SHOCK
     Dosage: UNK
     Route: 042
     Dates: start: 20060905, end: 20060911
  4. GASTER [Suspect]
     Indication: PROPHYLAXIS AGAINST GASTROINTESTINAL ULCER
     Dosage: 40.0 MG, DAILY
     Route: 041
     Dates: start: 20060906, end: 20060908
  5. MAGCOROL [Suspect]
     Indication: ENDOSCOPY
     Dosage: 100.0 G, DAILY
     Route: 048
     Dates: start: 20060905, end: 20060905
  6. MAGCOROL [Suspect]
     Indication: PREMEDICATION
  7. DORMICUM ^ROCHE^ [Suspect]
     Indication: SEDATION
     Dosage: 9.0 MG, DAILY
     Route: 041
     Dates: start: 20060906, end: 20060907
  8. MIDAZOLAM [Suspect]
     Dosage: 7.0 MG, DAILY
     Route: 041
     Dates: start: 20060905, end: 20060905
  9. BUMINATE [Concomitant]
     Dosage: UNK
     Route: 041
     Dates: start: 20060905, end: 20060907
  10. ANTITHROMBIN III [Concomitant]
     Dosage: UNK
     Route: 041
     Dates: start: 20060906, end: 20060918
  11. ATROPINE SULFATE [Concomitant]
     Dosage: UNK
     Route: 041
     Dates: start: 20060905, end: 20060907
  12. LEPETAN [Concomitant]
     Dosage: UNK
     Route: 041
     Dates: start: 20060906, end: 20060906
  13. CALCIUM CHLORIDE ANHYDROUS [Concomitant]
     Dosage: UNK
     Route: 041
     Dates: start: 20060905, end: 20060905
  14. RINGER-ACETAT [Concomitant]
     Dosage: UNK
     Route: 041
     Dates: start: 20060905, end: 20060906
  15. LACTEC [Concomitant]
     Dosage: UNK
     Route: 041
     Dates: start: 20060905, end: 20060905
  16. CALCICOL [Concomitant]
     Dosage: UNK
     Route: 041
     Dates: start: 20060906, end: 20060907
  17. DOBUTREX [Concomitant]
     Dosage: UNK
     Route: 041
     Dates: start: 20060905, end: 20060907
  18. DOPAMINE HYDROCHLORIDE [Concomitant]
     Dosage: UNK
     Route: 041
     Dates: start: 20060905, end: 20060905
  19. BOSMIN [Concomitant]
     Dosage: UNK
     Route: 041
     Dates: start: 20060906, end: 20060908
  20. LASIX [Concomitant]
     Dosage: UNK
     Route: 041
     Dates: start: 20060906, end: 20060906
  21. HETASTARCH [Concomitant]
     Dosage: UNK
     Route: 041
     Dates: start: 20060905, end: 20060916
  22. HYDROCORTONE [Concomitant]
     Dosage: UNK
     Route: 041
     Dates: start: 20060905, end: 20060909
  23. SOLU-CORTEF [Concomitant]
     Dosage: UNK
     Route: 041
     Dates: start: 20060905, end: 20060905
  24. VENILON [Concomitant]
     Dosage: UNK
     Route: 041
     Dates: start: 20060905, end: 20060909
  25. HUMULIN R [Concomitant]
     Dosage: UNK
     Route: 041
     Dates: start: 20060905, end: 20060917
  26. MAGNESIUM CITRATE [Concomitant]
     Dosage: UNK
     Route: 041
     Dates: start: 20060905, end: 20060905
  27. SOLU-MEDROL [Concomitant]
     Dosage: UNK
     Route: 041
     Dates: start: 20060906, end: 20060917
  28. NORADRENALINE [Concomitant]
     Dosage: UNK
     Route: 041
     Dates: start: 20060905, end: 20060917
  29. PENTAGIN [Concomitant]
     Dosage: UNK
     Route: 041
     Dates: start: 20060905, end: 20060905
  30. POTASSIUM CHLORIDE [Concomitant]
     Dosage: UNK
     Route: 041
     Dates: start: 20060905, end: 20060914
  31. ELASPOL [Concomitant]
     Dosage: UNK
     Route: 041
     Dates: start: 20060905, end: 20060910
  32. MEYLON [Concomitant]
     Dosage: UNK
     Route: 041
     Dates: start: 20060905, end: 20060918
  33. MIRACLID [Concomitant]
     Dosage: UNK
     Route: 041
     Dates: start: 20060905, end: 20060905
  34. PITRESSIN [Concomitant]
     Dosage: UNK
     Route: 041
     Dates: start: 20060905, end: 20060910
  35. VEEN-F [Concomitant]
     Dosage: UNK
     Route: 042
     Dates: start: 20060905, end: 20060906
  36. HUMAN RED BLOOD CELLS [Concomitant]
     Dosage: UNK
     Route: 042
     Dates: start: 20060906
  37. PLASMA, FRESH FROZEN [Concomitant]
     Dosage: UNK
     Route: 042
     Dates: start: 20060905
  38. FULCALIQ [Concomitant]
     Dosage: UNK
     Route: 042
     Dates: start: 20060906, end: 20060906
  39. HICALIQ [Concomitant]
     Dosage: UNK
     Route: 042
     Dates: start: 20060906
  40. SOLITA T [Concomitant]
     Dosage: UNK
     Route: 042
     Dates: start: 20060906, end: 20060907

REACTIONS (5)
  - Toxic epidermal necrolysis [Fatal]
  - Rhabdomyolysis [Recovered/Resolved with Sequelae]
  - Septic shock [Fatal]
  - Multi-organ failure [Fatal]
  - Acute respiratory distress syndrome [Fatal]
